FAERS Safety Report 21477070 (Version 1)
Quarter: 2022Q4

REPORT INFORMATION
  Report Type: Report from Study
  Country: US (occurrence: US)
  Receive Date: 20221019
  Receipt Date: 20221019
  Transmission Date: 20230112
  Serious: No
  Sender: FDA-Public Use
  Company Number: US-ABBVIE-4158727

PATIENT
  Sex: Female

DRUGS (1)
  1. SKYRIZI [Suspect]
     Active Substance: RISANKIZUMAB-RZAA
     Indication: Psoriasis
     Dosage: 150 MG/ML: RX1: INJECT 1 PEN UNDER THE SKIN (SUBCUTANEOUS INJECTION) ON DAY 1 , WEEK 4 THEN EVERY...
     Route: 058

REACTIONS (1)
  - Psoriasis [Unknown]
